FAERS Safety Report 24877146 (Version 1)
Quarter: 2025Q1

REPORT INFORMATION
  Report Type: Spontaneous
  Country: DE (occurrence: DE)
  Receive Date: 20250123
  Receipt Date: 20250123
  Transmission Date: 20250409
  Serious: Yes (Hospitalization, Other)
  Sender: CARNEGIE PHARMACEUTICALS LLC
  Company Number: DE-CARNEGIE-000062

PATIENT
  Age: 38 Year
  Sex: Male

DRUGS (1)
  1. ERYTHROMYCIN [Suspect]
     Active Substance: ERYTHROMYCIN
     Indication: Pneumonia
     Dosage: ERYTHROMYCIN (500 MG TWO TIMES A DAY) FOR ONE AND A HALF DAYS
     Route: 065

REACTIONS (3)
  - Rhabdomyolysis [Recovering/Resolving]
  - Acute kidney injury [Unknown]
  - Liver disorder [Unknown]
